FAERS Safety Report 5832700-0 (Version None)
Quarter: 2008Q3

REPORT INFORMATION
  Report Type: 
  Country: None (occurrence: None)
  Receive Date: 20080804
  Receipt Date: 20080804
  Transmission Date: 20090109
  Serious: Yes (Death, Hospitalization)
  Sender: FDA-Public Use
  Company Number: PHEH2000US10754

PATIENT
  Sex: Male
  Weight: 70 kg

DRUGS (2)
  1. RAD 666 RAD+ [Suspect]
     Indication: HEART TRANSPLANT
     Dosage: 1.5 MG, BID
     Route: 048
     Dates: start: 19990729, end: 20001113
  2. NEORAL [Suspect]
     Indication: HEART TRANSPLANT

REACTIONS (13)
  - ABDOMINAL PAIN [None]
  - CONVULSION [None]
  - COUGH [None]
  - DUODENITIS [None]
  - FATIGUE [None]
  - GASTRITIS HAEMORRHAGIC [None]
  - NASOPHARYNGITIS [None]
  - NEPHROPATHY TOXIC [None]
  - RENAL FAILURE CHRONIC [None]
  - RESPIRATORY DISTRESS [None]
  - RHINORRHOEA [None]
  - SEPSIS [None]
  - SINUSITIS [None]
